FAERS Safety Report 25396941 (Version 1)
Quarter: 2025Q2

REPORT INFORMATION
  Report Type: Spontaneous
  Country: US (occurrence: US)
  Receive Date: 20250604
  Receipt Date: 20250604
  Transmission Date: 20250717
  Serious: No
  Sender: FOUNDATION CONSUMER HEALTHCARE
  Company Number: US-FOUNDATIONCONSUMERHC-2024-US-054218

PATIENT
  Sex: Female

DRUGS (1)
  1. AFTERA [Suspect]
     Active Substance: LEVONORGESTREL
     Indication: Product used for unknown indication
     Route: 048
     Dates: start: 20241005, end: 20241005

REACTIONS (4)
  - Intentional product misuse [Recovered/Resolved]
  - Nausea [Not Recovered/Not Resolved]
  - Abdominal pain [Not Recovered/Not Resolved]
  - Product use in unapproved indication [Recovered/Resolved]

NARRATIVE: CASE EVENT DATE: 20241005
